FAERS Safety Report 23168204 (Version 1)
Quarter: 2023Q4

REPORT INFORMATION
  Report Type: Report from Study
  Country: US (occurrence: US)
  Receive Date: 20231109
  Receipt Date: 20231109
  Transmission Date: 20240110
  Serious: Yes (Other)
  Sender: FDA-Public Use
  Company Number: US-ABBVIE-5443611

PATIENT
  Sex: Male
  Weight: 87 kg

DRUGS (7)
  1. HUMIRA [Suspect]
     Active Substance: ADALIMUMAB
     Indication: Psoriatic arthropathy
     Dosage: FORM STRENGTH: 40 MILLIGRAM
     Route: 058
     Dates: start: 20220821, end: 20221120
  2. HUMIRA [Suspect]
     Active Substance: ADALIMUMAB
     Dosage: FORM STRENGTH: 40 MILLIGRAM
     Route: 058
     Dates: start: 20230101
  3. SIMVASTATIN [Concomitant]
     Active Substance: SIMVASTATIN
     Indication: Blood cholesterol increased
  4. MURO 128 [Concomitant]
     Active Substance: SODIUM CHLORIDE
     Indication: Corneal disorder
  5. TIMOLOL [Concomitant]
     Active Substance: TIMOLOL
     Indication: Ocular discomfort
  6. FOLIC ACID [Concomitant]
     Active Substance: FOLIC ACID
     Indication: Product used for unknown indication
  7. PREDNISOLONE [Concomitant]
     Active Substance: PREDNISOLONE
     Indication: Retinal detachment
     Dosage: TIME INTERVAL: 0.33333333 DAYS

REACTIONS (8)
  - Loose tooth [Recovered/Resolved]
  - Urticaria [Not Recovered/Not Resolved]
  - Therapeutic product effect incomplete [Not Recovered/Not Resolved]
  - Arthritis [Not Recovered/Not Resolved]
  - Periodontal disease [Recovered/Resolved]
  - Psoriasis [Not Recovered/Not Resolved]
  - Dermatitis contact [Not Recovered/Not Resolved]
  - Poor personal hygiene [Unknown]

NARRATIVE: CASE EVENT DATE: 20220101
